FAERS Safety Report 5016664-8 (Version None)
Quarter: 2006Q2

REPORT INFORMATION
  Report Type: 
  Country: None (occurrence: None)
  Receive Date: 20060602
  Receipt Date: 20060526
  Transmission Date: 20061013
  Serious: Yes (Other)
  Sender: FDA-Public Use
  Company Number: DE-JNJFOC-20060500566

PATIENT
  Sex: Female
  Weight: 90 kg

DRUGS (2)
  1. RISPERDAL [Suspect]
     Indication: DRUG USE FOR UNKNOWN INDICATION
     Route: 048
  2. ACE DRUG INHIBITOR [Concomitant]
     Route: 048

REACTIONS (3)
  - AMNESIA [None]
  - FALL [None]
  - SYNCOPE [None]
